FAERS Safety Report 5585128-5 (Version None)
Quarter: 2008Q1

REPORT INFORMATION
  Report Type: 
  Country: None (occurrence: None)
  Receive Date: 20080109
  Receipt Date: 20071214
  Transmission Date: 20080703
  Serious: No
  Sender: FDA-Public Use
  Company Number: US-BOEHRINGER INGELHEIM PHARMACEUTICALS, INC.-2007-BP-24419BP

PATIENT
  Age: 77 Year
  Sex: Female

DRUGS (9)
  1. MICARDIS HCT [Suspect]
     Indication: HYPERTENSION
     Route: 048
     Dates: start: 20070901, end: 20071106
  2. MICARDIS HCT [Suspect]
     Indication: SWELLING
  3. VERAPAMIL [Concomitant]
  4. LEVOXYL [Concomitant]
  5. EVISTA [Concomitant]
  6. TETRACYCLINE [Concomitant]
  7. LIPITOR [Concomitant]
  8. PERMA SMOOTHE/SCALP [Concomitant]
  9. SELENIUM-SULPHATE LOTION [Concomitant]

REACTIONS (3)
  - BLOOD PRESSURE INCREASED [None]
  - JOINT SWELLING [None]
  - OEDEMA PERIPHERAL [None]
